FAERS Safety Report 23154019 (Version 2)
Quarter: 2025Q1

REPORT INFORMATION
  Report Type: Spontaneous
  Country: US (occurrence: US)
  Receive Date: 20231107
  Receipt Date: 20250106
  Transmission Date: 20250408
  Serious: Yes (Other)
  Sender: SANOFI AVENTIS
  Company Number: US-SA-SAC20231104000071

PATIENT
  Sex: Female
  Weight: 74 kg

DRUGS (6)
  1. DUPIXENT [Suspect]
     Active Substance: DUPILUMAB
     Indication: Dermatitis atopic
     Dosage: 300 MG, QOW
     Route: 058
  2. RIFAMPIN [Concomitant]
     Active Substance: RIFAMPIN
  3. METHOTREXATE [Concomitant]
     Active Substance: METHOTREXATE
  4. IBUPROFEN [Concomitant]
     Active Substance: IBUPROFEN
  5. NITROFURANTOIN [Concomitant]
     Active Substance: NITROFURANTOIN
  6. ROSUVASTATIN CALCIUM [Concomitant]
     Active Substance: ROSUVASTATIN CALCIUM

REACTIONS (6)
  - Loss of consciousness [Unknown]
  - Head injury [Unknown]
  - Fall [Unknown]
  - Macular degeneration [Unknown]
  - Visual impairment [Unknown]
  - Blood pressure decreased [Unknown]
